FAERS Safety Report 22154548 (Version 4)
Quarter: 2023Q2

REPORT INFORMATION
  Report Type: Report from Study
  Country: PA (occurrence: PA)
  Receive Date: 20230330
  Receipt Date: 20230627
  Transmission Date: 20230722
  Serious: Yes (Other)
  Sender: FDA-Public Use
  Company Number: PA-002147023-NVSC2023PA062766

PATIENT
  Age: 47 Year
  Sex: Female

DRUGS (3)
  1. KISQALI [Suspect]
     Active Substance: RIBOCICLIB
     Indication: Breast cancer metastatic
     Dosage: 600 MG, QD (BY MOUTH) (3 TABLETS FOR 21 DAYS)
     Route: 048
     Dates: start: 202202
  2. KISQALI [Suspect]
     Active Substance: RIBOCICLIB
     Dosage: 600 MG, QD (BY MOUTH)
     Route: 048
     Dates: start: 202203
  3. ANASTROZOLE [Suspect]
     Active Substance: ANASTROZOLE
     Indication: Breast cancer
     Dosage: 1 MG, QD (1 TABLET FOR 28 DAYS)
     Route: 048
     Dates: start: 20220304

REACTIONS (12)
  - Diabetes mellitus [Not Recovered/Not Resolved]
  - Metastases to bone [Unknown]
  - Metastases to spine [Unknown]
  - Nausea [Not Recovered/Not Resolved]
  - Spinal pain [Unknown]
  - Pigmentation disorder [Not Recovered/Not Resolved]
  - Feeling hot [Not Recovered/Not Resolved]
  - Mass [Recovered/Resolved]
  - Dizziness [Not Recovered/Not Resolved]
  - Diarrhoea [Not Recovered/Not Resolved]
  - Malaise [Not Recovered/Not Resolved]
  - Back pain [Unknown]

NARRATIVE: CASE EVENT DATE: 20220201
